FAERS Safety Report 5726650-8 (Version None)
Quarter: 2008Q2

REPORT INFORMATION
  Report Type: 
  Country: None (occurrence: None)
  Receive Date: 20080502
  Receipt Date: 20080424
  Transmission Date: 20081010
  Serious: Yes (Other)
  Sender: FDA-Public Use
  Company Number: US-PFIZER INC-2008018451

PATIENT
  Sex: Female
  Weight: 108.9 kg

DRUGS (5)
  1. LIPITOR [Suspect]
     Indication: BLOOD CHOLESTEROL INCREASED
     Route: 048
     Dates: start: 20080204, end: 20080204
  2. LIPITOR [Suspect]
     Indication: HYPERLIPIDAEMIA
  3. METFORMIN HCL [Suspect]
     Indication: METABOLIC SYNDROME
     Route: 048
     Dates: start: 20080204, end: 20080204
  4. LISINOPRIL AND HYDROCHLOROTHIAZIDE [Suspect]
     Indication: HYPERTENSION
     Dosage: TEXT:10/12.5 MG
     Route: 048
     Dates: start: 20080204, end: 20080204
  5. LISINOPRIL AND HYDROCHLOROTHIAZIDE [Suspect]
     Indication: GLUCOSE TOLERANCE IMPAIRED

REACTIONS (10)
  - ABDOMINAL PAIN UPPER [None]
  - ANXIETY [None]
  - CRYING [None]
  - DIZZINESS [None]
  - EATING DISORDER [None]
  - GOITRE [None]
  - INSOMNIA [None]
  - MUSCLE SPASMS [None]
  - NAUSEA [None]
  - ODYNOPHAGIA [None]
